FAERS Safety Report 15299776 (Version 1)
Quarter: 2018Q3

REPORT INFORMATION
  Report Type: Spontaneous
  Country: FR (occurrence: FR)
  Receive Date: 20180821
  Receipt Date: 20180821
  Transmission Date: 20181010
  Serious: Yes (Hospitalization)
  Sender: FDA-Public Use
  Company Number: FR-TEVA-2018-FR-944517

PATIENT
  Age: 27 Year
  Sex: Male

DRUGS (5)
  1. CHLORHYDRATE DE TRAMADOL [Suspect]
     Active Substance: TRAMADOL HYDROCHLORIDE
     Route: 065
     Dates: end: 201803
  2. HEROIN [Suspect]
     Active Substance: DIAMORPHINE
     Dosage: 1 GRAM
     Route: 065
     Dates: start: 20180410, end: 20180410
  3. SUBUTEX [Suspect]
     Active Substance: BUPRENORPHINE HYDROCHLORIDE
     Route: 065
     Dates: end: 201803
  4. CANNABIS ET RESINE [Suspect]
     Active Substance: CANNABIS SATIVA SUBSP. INDICA TOP
     Route: 055
     Dates: end: 20180408
  5. TERCIAN [Suspect]
     Active Substance: CYAMEMAZINE
     Route: 065
     Dates: end: 201803

REACTIONS (2)
  - Hallucinations, mixed [Unknown]
  - Drug abuse [Unknown]

NARRATIVE: CASE EVENT DATE: 201803
